FAERS Safety Report 4309011-8 (Version None)
Quarter: 2004Q1

REPORT INFORMATION
  Report Type: 
  Country: None (occurrence: None)
  Receive Date: 20040302
  Receipt Date: 20040205
  Transmission Date: 20041129
  Serious: Yes (Hospitalization)
  Sender: FDA-Public Use
  Company Number: US-BRISTOL-MYERS SQUIBB COMPANY-12497699

PATIENT
  Age: 75 Year
  Sex: Female

DRUGS (8)
  1. COUMADIN [Suspect]
     Indication: CEREBROVASCULAR ACCIDENT
     Route: 048
     Dates: start: 20030725, end: 20040119
  2. LIPITOR [Concomitant]
  3. COZAAR [Concomitant]
  4. MACROBID [Concomitant]
  5. AMOXICILLIN [Concomitant]
  6. TIMOPTIC DROPS [Concomitant]
     Route: 047
  7. ALTRETAMINE [Concomitant]
  8. PLAVIX [Concomitant]
     Dates: start: 19990701

REACTIONS (3)
  - GASTROINTESTINAL HAEMORRHAGE [None]
  - INSOMNIA [None]
  - OXYGEN SATURATION DECREASED [None]
